FAERS Safety Report 7518490-4 (Version None)
Quarter: 2011Q2

REPORT INFORMATION
  Report Type: 
  Country: None (occurrence: None)
  Receive Date: 20110602
  Receipt Date: 20110525
  Transmission Date: 20111010
  Serious: Yes (Hospitalization)
  Sender: FDA-Public Use
  Company Number: US-ASTELLAS-2011US001518

PATIENT
  Sex: Female

DRUGS (2)
  1. LISINOPRIL [Concomitant]
     Indication: PRODUCT USED FOR UNKNOWN INDICATION
     Dosage: UNK
     Route: 065
  2. VESICARE [Suspect]
     Indication: URGE INCONTINENCE
     Dosage: UNK
     Route: 048
     Dates: start: 20110308

REACTIONS (4)
  - ANAPHYLACTIC REACTION [None]
  - DYSPNOEA [None]
  - PHARYNGEAL OEDEMA [None]
  - SWELLING FACE [None]
